FAERS Safety Report 14154880 (Version 1)
Quarter: 2017Q4

REPORT INFORMATION
  Report Type: Spontaneous
  Country: US (occurrence: US)
  Receive Date: 20171102
  Receipt Date: 20171102
  Transmission Date: 20180321
  Serious: No
  Sender: FDA-Public Use
  Company Number: US-BIOGEN-2017BI00477752

PATIENT
  Sex: Female

DRUGS (1)
  1. AVONEX [Suspect]
     Active Substance: INTERFERON BETA-1A
     Indication: MULTIPLE SCLEROSIS
     Route: 065
     Dates: start: 20060426, end: 20070201

REACTIONS (7)
  - Weight increased [Unknown]
  - Mobility decreased [Unknown]
  - Feeling abnormal [Unknown]
  - Depression [Unknown]
  - Dysgraphia [Unknown]
  - Malaise [Unknown]
  - Emotional distress [Unknown]
